FAERS Safety Report 8443567-9 (Version None)
Quarter: 2012Q2

REPORT INFORMATION
  Report Type: 
  Country: None (occurrence: None)
  Receive Date: 20120618
  Receipt Date: 20120611
  Transmission Date: 20120825
  Serious: No
  Sender: FDA-Public Use
  Company Number: US-PFIZER INC-2012141266

PATIENT
  Sex: Male

DRUGS (3)
  1. DILANTIN-125 [Suspect]
  2. DETROL [Suspect]
  3. LYRICA [Suspect]

REACTIONS (1)
  - FEELING ABNORMAL [None]
